FAERS Safety Report 17441584 (Version 1)
Quarter: 2020Q1

REPORT INFORMATION
  Report Type: Spontaneous
  Country: US (occurrence: US)
  Receive Date: 20200220
  Receipt Date: 20200220
  Transmission Date: 20200409
  Serious: No
  Sender: FDA-Public Use
  Company Number: US-ARBOR PHARMACEUTICALS, LLC-US-2019ARB001547

PATIENT
  Sex: Female

DRUGS (3)
  1. EVEKEO ODT [Suspect]
     Active Substance: AMPHETAMINE SULFATE
     Indication: METHYLENETETRAHYDROFOLATE REDUCTASE GENE MUTATION
     Dosage: 15 MG, UNK
     Route: 048
     Dates: start: 20191030
  2. EVEKEO ODT [Suspect]
     Active Substance: AMPHETAMINE SULFATE
     Indication: ATTENTION DEFICIT/HYPERACTIVITY DISORDER
     Dosage: 10 MG, UNK
     Route: 048
  3. EVEKEO ODT [Suspect]
     Active Substance: AMPHETAMINE SULFATE
     Indication: FATIGUE

REACTIONS (2)
  - Product administered to patient of inappropriate age [Unknown]
  - Off label use [Unknown]
